FAERS Safety Report 25045473 (Version 2)
Quarter: 2025Q1

REPORT INFORMATION
  Report Type: Spontaneous
  Country: CN (occurrence: CN)
  Receive Date: 20250306
  Receipt Date: 20250331
  Transmission Date: 20250409
  Serious: Yes (Hospitalization, Other)
  Sender: BAYER HEALTHCARE PHARMACEUTICALS INC.
  Company Number: CN-BAYER-2025A025666

PATIENT
  Age: 43 Year
  Sex: Female

DRUGS (1)
  1. MIRENA [Suspect]
     Active Substance: LEVONORGESTREL
     Indication: Uterine leiomyoma
     Dosage: 20?G/DAY
     Route: 015
     Dates: start: 20210301, end: 202105

REACTIONS (7)
  - Connective tissue disorder [Recovering/Resolving]
  - Interstitial lung disease [Recovering/Resolving]
  - Gastrooesophageal reflux disease [Recovering/Resolving]
  - Chronic gastritis [Recovering/Resolving]
  - Hiatus hernia [Recovering/Resolving]
  - Immune system disorder [Recovering/Resolving]
  - Device use issue [None]

NARRATIVE: CASE EVENT DATE: 20210301
